FAERS Safety Report 6235070-1 (Version None)
Quarter: 2009Q2

REPORT INFORMATION
  Report Type: 
  Country: None (occurrence: None)
  Receive Date: 20090618
  Receipt Date: 20090608
  Transmission Date: 20091009
  Serious: Yes (Hospitalization)
  Sender: FDA-Public Use
  Company Number: PHHY2009PL22679

PATIENT
  Sex: Male
  Weight: 68 kg

DRUGS (11)
  1. CYCLOSPORINE [Suspect]
     Indication: RHEUMATOID ARTHRITIS
     Dosage: 50-100 MG/DAY
     Route: 048
     Dates: start: 20030603, end: 20030704
  2. SULFASALAZINE [Suspect]
     Indication: RHEUMATOID ARTHRITIS
     Dosage: 2 G, QD
     Route: 048
     Dates: start: 20000301, end: 20040602
  3. SULFASALAZINE [Suspect]
     Dosage: UNK
     Dates: end: 20060901
  4. METHOTREXATE [Suspect]
     Indication: RHEUMATOID ARTHRITIS
     Dosage: 10 MG/WEEK
     Route: 048
     Dates: start: 19981113, end: 20000220
  5. ENDOXAN [Suspect]
     Indication: AMYLOIDOSIS
     Dosage: 600-1000 MG/BODY MASS
     Route: 042
     Dates: start: 20070301, end: 20070401
  6. ENDOXAN [Suspect]
     Indication: RHEUMATOID ARTHRITIS
  7. MEDROL [Concomitant]
     Indication: RHEUMATOID ARTHRITIS
     Dosage: 12-16 MG DAILY
     Route: 048
     Dates: start: 19981113
  8. SOLU-MEDROL [Concomitant]
     Indication: RHEUMATOID ARTHRITIS
     Dosage: 500 MG, TID
     Route: 042
     Dates: start: 20070301, end: 20070303
  9. SOLU-MEDROL [Concomitant]
     Indication: AMYLOIDOSIS
  10. SOLU-MEDROL [Concomitant]
     Indication: LEUKOPENIA
  11. BONIVA [Concomitant]
     Indication: OSTEOPOROSIS
     Dosage: 8 MG/DAY
     Route: 042
     Dates: start: 20080101

REACTIONS (5)
  - AMYLOIDOSIS [None]
  - BLOOD PRESSURE INCREASED [None]
  - LEUKOPENIA [None]
  - RENAL FAILURE [None]
  - URINARY TRACT INFECTION [None]
